FAERS Safety Report 6589089-1 (Version None)
Quarter: 2010Q1

REPORT INFORMATION
  Report Type: 
  Country: None (occurrence: None)
  Receive Date: 20100212
  Receipt Date: 20100126
  Transmission Date: 20100710
  Serious: Yes (Other)
  Sender: FDA-Public Use
  Company Number: 2010AL000668

PATIENT
  Age: 18 Year
  Sex: Female

DRUGS (3)
  1. ACETAMINOPHEN + CODEINE PHOSPHATE ORAL SOLUTION USP,   (ACETAMINOPHEN [Suspect]
     Indication: MIGRAINE
     Dates: start: 20081230
  2. MOVICOL [Concomitant]
  3. CERVARIX [Concomitant]

REACTIONS (3)
  - ABORTION SPONTANEOUS [None]
  - DRUG EXPOSURE DURING PREGNANCY [None]
  - PREGNANCY [None]
